FAERS Safety Report 8661935 (Version 2)
Quarter: 2014Q2

REPORT INFORMATION
  Report Type: Report from Study
  Country: US (occurrence: US)
  Receive Date: 20120712
  Receipt Date: 20140421
  Transmission Date: 20141212
  Serious: Yes (Hospitalization, Other)
  Sender: FDA-Public Use
  Company Number: US-ACTELION-A-NJ2012-68327

PATIENT
  Age: 65 Year
  Sex: Female

DRUGS (4)
  1. VELETRI [Suspect]
     Indication: PULMONARY ARTERIAL HYPERTENSION
     Dosage: 24 NG/KG, PER MIN
     Route: 041
     Dates: start: 20100810
  2. RADIOACTIVE IODINE SOLUTION [Suspect]
  3. SILDENAFIL [Concomitant]
  4. COUMADIN [Concomitant]

REACTIONS (8)
  - Basedow^s disease [Unknown]
  - Hyperparathyroidism [Unknown]
  - Wheezing [Recovering/Resolving]
  - Hyperthyroidism [Unknown]
  - Radiotherapy to thyroid [Unknown]
  - Palpitations [Recovering/Resolving]
  - Bone pain [Unknown]
  - Muscle spasms [Unknown]
